FAERS Safety Report 6245099-5 (Version None)
Quarter: 2009Q2

REPORT INFORMATION
  Report Type: 
  Country: None (occurrence: None)
  Receive Date: 20090623
  Receipt Date: 20090623
  Transmission Date: 20091009
  Serious: No
  Sender: FDA-Public Use
  Company Number: None

PATIENT
  Age: 71 Year
  Sex: Female
  Weight: 56.6996 kg

DRUGS (5)
  1. METOPROLOL SUCCINATE [Suspect]
     Indication: BLOOD PRESSURE
     Dosage: TAKE ONE DAILY BEDTIME '
     Dates: start: 20060115, end: 20090619
  2. METOPROLOL SUCCINATE [Suspect]
     Indication: HEART RATE DECREASED
     Dosage: TAKE ONE DAILY BEDTIME '
     Dates: start: 20060115, end: 20090619
  3. JANUMET [Concomitant]
  4. CRESTOR [Concomitant]
  5. LEVOTHYROXINE SODIUM [Concomitant]

REACTIONS (12)
  - ARTHRALGIA [None]
  - BACK PAIN [None]
  - BLOOD PRESSURE ORTHOSTATIC ABNORMAL [None]
  - DIARRHOEA [None]
  - DIZZINESS [None]
  - DRUG PRESCRIBING ERROR [None]
  - FATIGUE [None]
  - LIBIDO DECREASED [None]
  - NECK PAIN [None]
  - PAIN IN EXTREMITY [None]
  - RASH [None]
  - WRONG DRUG ADMINISTERED [None]
